FAERS Safety Report 5716288-0 (Version None)
Quarter: 2008Q2

REPORT INFORMATION
  Report Type: 
  Country: None (occurrence: None)
  Receive Date: 20080424
  Receipt Date: 20080414
  Transmission Date: 20081010
  Serious: Yes (Hospitalization)
  Sender: FDA-Public Use
  Company Number: B0517268B

PATIENT
  Age: 80 Year
  Sex: Female

DRUGS (1)
  1. LAPATINIB [Suspect]
     Dosage: 1250MG PER DAY
     Route: 048
     Dates: start: 20070322, end: 20070508

REACTIONS (1)
  - DRUG TOXICITY [None]
